FAERS Safety Report 14880690 (Version 1)
Quarter: 2018Q2

REPORT INFORMATION
  Report Type: Spontaneous
  Country: US (occurrence: US)
  Receive Date: 20180425
  Receipt Date: 20180425
  Transmission Date: 20180711
  Serious: Yes (Life-Threatening, Hospitalization, Disabling)
  Sender: FDA-Public Use
  Company Number: None

PATIENT
  Age: 41 Year
  Sex: Male
  Weight: 125.7 kg

DRUGS (2)
  1. VORICONAZOLE 200 MG BID [Concomitant]
     Dates: start: 20180411, end: 20180423
  2. PONATINIB [Suspect]
     Active Substance: PONATINIB
     Indication: ACUTE LYMPHOCYTIC LEUKAEMIA
     Route: 048
     Dates: start: 20180416, end: 20180423

REACTIONS (2)
  - Thrombocytopenia [None]
  - Cerebrovascular accident [None]

NARRATIVE: CASE EVENT DATE: 20180424
